FAERS Safety Report 6330939-1 (Version None)
Quarter: 2009Q3

REPORT INFORMATION
  Report Type: 
  Country: None (occurrence: None)
  Receive Date: 20090827
  Receipt Date: 20090818
  Transmission Date: 20100115
  Serious: Yes (Hospitalization, Other)
  Sender: FDA-Public Use
  Company Number: FR-ELI_LILLY_AND_COMPANY-FR200908003867

PATIENT
  Sex: Male

DRUGS (17)
  1. HUMALOG [Suspect]
     Indication: TYPE 2 DIABETES MELLITUS
     Route: 058
     Dates: start: 20090520
  2. PLAVIX [Concomitant]
     Dosage: 75 MG, UNK
     Route: 048
     Dates: end: 20090621
  3. PLAVIX [Concomitant]
     Dosage: 75 MG, UNK
     Route: 048
     Dates: start: 20090624
  4. LASIX [Concomitant]
     Dosage: UNK, UNK
     Route: 048
     Dates: start: 20090520, end: 20090617
  5. LASIX [Concomitant]
     Dosage: 20 MG, DAILY (1/D)
     Route: 048
     Dates: start: 20090621
  6. INEXIUM [Concomitant]
     Dosage: 20 MG, DAILY (1/D)
     Route: 048
     Dates: start: 20090520, end: 20090603
  7. INEXIUM [Concomitant]
     Dosage: 40 MG, DAILY (1/D)
     Route: 048
     Dates: start: 20090604, end: 20090624
  8. ALDACTONE [Concomitant]
     Dosage: 25 MG, DAILY (1/D)
     Route: 048
     Dates: start: 20090520, end: 20090602
  9. COVERSYL [Concomitant]
     Dates: start: 20030101
  10. COVERSYL [Concomitant]
     Dosage: 2 MG, UNK
     Route: 048
     Dates: start: 20090520, end: 20090620
  11. KREDEX [Concomitant]
     Dosage: 6.25 MG, DAILY (1/D)
     Route: 048
     Dates: start: 20090520
  12. NOVOMIX                            /01475801/ [Concomitant]
     Route: 058
     Dates: start: 20090520
  13. OXEOL [Concomitant]
     Dosage: 10 MG, UNK
     Route: 048
     Dates: start: 20090617
  14. NITRODERM [Concomitant]
     Dosage: 5 MG, DAILY (1/D)
     Route: 062
     Dates: end: 20090623
  15. KARDEGIC [Concomitant]
     Dosage: 160 MG, DAILY (1/D)
     Route: 048
     Dates: start: 20030901, end: 20090623
  16. METFORMIN HCL [Concomitant]
  17. TRIATEC [Concomitant]
     Dates: start: 20090620

REACTIONS (3)
  - HYPOTENSION [None]
  - MYELODYSPLASTIC SYNDROME [None]
  - THROMBOCYTOPENIA [None]
